FAERS Safety Report 6532358-1 (Version None)
Quarter: 2010Q1

REPORT INFORMATION
  Report Type: 
  Country: None (occurrence: None)
  Receive Date: 20100108
  Receipt Date: 20100104
  Transmission Date: 20100710
  Serious: Yes (Death)
  Sender: FDA-Public Use
  Company Number: US-PFIZER INC-2010001073

PATIENT
  Age: 74 Year
  Sex: Male

DRUGS (6)
  1. SERTRALINE HCL [Suspect]
     Route: 048
  2. NITROGLYCERIN [Suspect]
     Route: 048
  3. METOPROLOL [Suspect]
     Route: 048
  4. RANOLAZINE [Suspect]
     Route: 048
  5. ACETAMINOPHEN AND HYDROCODONE BITARTRATE [Suspect]
     Route: 048
  6. HYDRALAZINE [Suspect]
     Route: 048

REACTIONS (1)
  - COMPLETED SUICIDE [None]
